FAERS Safety Report 11719537 (Version 1)
Quarter: 2015Q4

REPORT INFORMATION
  Report Type: Spontaneous
  Country: US (occurrence: None)
  Receive Date: 20151109
  Receipt Date: 20151109
  Transmission Date: 20160304
  Serious: Yes (Disabling)
  Sender: FDA-Public Use
  Company Number: None

PATIENT
  Age: 80 Year
  Sex: Male
  Weight: 64.41 kg

DRUGS (3)
  1. SIMVASTIN [Concomitant]
     Active Substance: SIMVASTATIN
  2. OFLOXACIN. [Suspect]
     Active Substance: OFLOXACIN
     Indication: CATARACT OPERATION
     Route: 031
     Dates: start: 20141204, end: 20141228
  3. VITAMIN D [Concomitant]
     Active Substance: CHOLECALCIFEROL

REACTIONS (5)
  - Abasia [None]
  - Musculoskeletal stiffness [None]
  - Weight decreased [None]
  - Mitral valve incompetence [None]
  - Myalgia [None]

NARRATIVE: CASE EVENT DATE: 20150110
